FAERS Safety Report 9151031 (Version 1)
Quarter: 2013Q1

REPORT INFORMATION
  Report Type: Spontaneous
  Country: US (occurrence: US)
  Receive Date: 20130308
  Receipt Date: 20130308
  Transmission Date: 20140127
  Serious: Yes (Other)
  Sender: FDA-Public Use
  Company Number: US-TARO-2013P1002890

PATIENT
  Age: 47 Year
  Sex: Female
  Weight: 72.58 kg

DRUGS (4)
  1. ETODOLAC [Suspect]
     Indication: ARTHRITIS
     Route: 048
     Dates: start: 201208, end: 201209
  2. ETODOLAC [Suspect]
     Indication: ARTHRITIS
     Route: 048
     Dates: start: 201209, end: 201211
  3. NEXIUM [Suspect]
     Indication: DYSPEPSIA
  4. TOPAMAX [Concomitant]

REACTIONS (7)
  - Weight decreased [Recovering/Resolving]
  - Dyspepsia [Not Recovered/Not Resolved]
  - Pharyngeal oedema [Recovering/Resolving]
  - Migraine [Recovered/Resolved]
  - Decreased appetite [Recovering/Resolving]
  - Swollen tongue [Recovering/Resolving]
  - Drug dispensing error [Unknown]
